FAERS Safety Report 17086742 (Version 1)
Quarter: 2019Q4

REPORT INFORMATION
  Report Type: Spontaneous
  Country: US (occurrence: US)
  Receive Date: 20191031
  Receipt Date: 20191031
  Transmission Date: 20200122
  Serious: Yes (Hospitalization)
  Sender: FDA-Public Use
  Company Number: None

PATIENT
  Sex: Male
  Weight: 70.7 kg

DRUGS (7)
  1. MITOXANTRONE HYDROCHLORIDE. [Concomitant]
     Active Substance: MITOXANTRONE HYDROCHLORIDE
  2. ERWINIA ASPARAGINASE [Suspect]
     Active Substance: ASPARAGINASE ERWINIA CHRYSANTHEMI
  3. HYDROCORTISONE. [Concomitant]
     Active Substance: HYDROCORTISONE
  4. DEXAMETHASONE. [Concomitant]
     Active Substance: DEXAMETHASONE
  5. CYTARABINE. [Concomitant]
     Active Substance: CYTARABINE
  6. METHOTREXATE. [Concomitant]
     Active Substance: METHOTREXATE
  7. VINCRISTINE SULFATE. [Suspect]
     Active Substance: VINCRISTINE SULFATE

REACTIONS (18)
  - Ascites [None]
  - Multiple organ dysfunction syndrome [None]
  - Depressed level of consciousness [None]
  - Platelet count decreased [None]
  - Hepatic function abnormal [None]
  - International normalised ratio increased [None]
  - Electrolyte imbalance [None]
  - Haemofiltration [None]
  - Colitis [None]
  - Pseudomonal sepsis [None]
  - Capillary leak syndrome [None]
  - Acute kidney injury [None]
  - General physical health deterioration [None]
  - Coagulopathy [None]
  - Hyperbilirubinaemia [None]
  - Neutropenia [None]
  - Pleural effusion [None]
  - Respiratory distress [None]

NARRATIVE: CASE EVENT DATE: 20191021
